FAERS Safety Report 7186866-3 (Version None)
Quarter: 2010Q4

REPORT INFORMATION
  Report Type: 
  Country: None (occurrence: None)
  Receive Date: 20101222
  Receipt Date: 20101216
  Transmission Date: 20110411
  Serious: Yes (Death, Hospitalization)
  Sender: FDA-Public Use
  Company Number: B0690199A

PATIENT
  Sex: Female

DRUGS (13)
  1. ZANTAC [Suspect]
     Dates: start: 20050111
  2. ZANTAC [Suspect]
     Dates: start: 20050124
  3. ZANTAC [Suspect]
     Indication: HYPERSENSITIVITY
     Dosage: 50MG PER DAY
     Dates: start: 20050131, end: 20050131
  4. PACLITAXEL [Concomitant]
     Dates: start: 20050114
  5. PACLITAXEL [Concomitant]
     Dates: start: 20050124
  6. PACLITAXEL [Concomitant]
     Dates: start: 20050131
  7. CARBOPLATIN [Concomitant]
     Dates: start: 20050114
  8. CARBOPLATIN [Concomitant]
     Dates: start: 20050124
  9. CARBOPLATIN [Concomitant]
     Dates: start: 20050131
  10. ISOTONIC SODIUM CHLORIDE SOLUTION [Concomitant]
     Dosage: 100ML PER DAY
     Route: 042
     Dates: start: 20050131, end: 20050131
  11. HERBESSER [Concomitant]
     Indication: ANGINA PECTORIS
     Dosage: 90MG PER DAY
     Route: 048
     Dates: start: 20050113, end: 20050208
  12. NITOROL [Concomitant]
     Indication: ANGINA PECTORIS
     Dosage: 15MG PER DAY
     Route: 048
     Dates: start: 20050113, end: 20050208
  13. BUFFERIN [Concomitant]
     Indication: ANGINA PECTORIS
     Dosage: 81MG PER DAY
     Route: 048
     Dates: start: 20050113, end: 20050208

REACTIONS (2)
  - ANAPHYLACTIC REACTION [None]
  - BREAST CANCER RECURRENT [None]
